FAERS Safety Report 9383447 (Version 1)
Quarter: 2013Q3

REPORT INFORMATION
  Report Type: Spontaneous
  Country: AU (occurrence: AU)
  Receive Date: 20130704
  Receipt Date: 20130704
  Transmission Date: 20140515
  Serious: Yes (Death, Hospitalization)
  Sender: FDA-Public Use
  Company Number: AU-ROCHE-1242060

PATIENT
  Age: 56 Year
  Sex: Male

DRUGS (31)
  1. NEUPOGEN [Suspect]
     Indication: PRODUCT USED FOR UNKNOWN INDICATION
     Route: 058
     Dates: start: 20130312
  2. SULFAMETHOXAZOLE/TRIMETHOPRIM [Suspect]
     Indication: PRODUCT USED FOR UNKNOWN INDICATION
     Route: 065
     Dates: start: 20130219, end: 20130310
  3. GANCICLOVIR SODIUM [Suspect]
     Indication: PRODUCT USED FOR UNKNOWN INDICATION
     Route: 042
     Dates: start: 20130306, end: 20130311
  4. VALGANCICLOVIR HYDROCHLORIDE [Suspect]
     Indication: PRODUCT USED FOR UNKNOWN INDICATION
     Route: 065
     Dates: start: 20130305, end: 20130306
  5. TAZOBACTAM [Suspect]
     Indication: PRODUCT USED FOR UNKNOWN INDICATION
     Route: 042
     Dates: start: 20130311
  6. PIPERACILLIN [Suspect]
     Indication: PRODUCT USED FOR UNKNOWN INDICATION
     Route: 042
     Dates: start: 20130311
  7. VANCOMYCIN HYDROCHLORIDE [Suspect]
     Indication: PRODUCT USED FOR UNKNOWN INDICATION
     Route: 065
     Dates: start: 20130312
  8. ACICLOVIR [Suspect]
     Indication: PRODUCT USED FOR UNKNOWN INDICATION
     Route: 042
     Dates: start: 20130313
  9. AMPHOTERICIN [Suspect]
     Indication: PRODUCT USED FOR UNKNOWN INDICATION
     Route: 048
     Dates: start: 20130310
  10. CASPOFUNGIN [Suspect]
     Indication: PRODUCT USED FOR UNKNOWN INDICATION
     Route: 065
     Dates: start: 20130312
  11. ENOXAPARIN [Suspect]
     Indication: PRODUCT USED FOR UNKNOWN INDICATION
     Route: 058
     Dates: start: 20130309
  12. MAGMIN [Suspect]
     Indication: PRODUCT USED FOR UNKNOWN INDICATION
     Route: 048
     Dates: start: 20130306
  13. MEROPENEM [Suspect]
     Indication: PRODUCT USED FOR UNKNOWN INDICATION
     Route: 065
     Dates: start: 20130312
  14. ONDANSETRON HCL [Suspect]
     Indication: PRODUCT USED FOR UNKNOWN INDICATION
     Route: 065
     Dates: start: 20130509
  15. PARACETAMOL [Suspect]
     Indication: PRODUCT USED FOR UNKNOWN INDICATION
     Route: 048
     Dates: start: 20130307
  16. MYCOPHENOLATE MOFETIL [Concomitant]
     Indication: PRODUCT USED FOR UNKNOWN INDICATION
     Route: 065
  17. AMLODIPINE [Concomitant]
     Route: 065
  18. CHLORPHENESIN [Concomitant]
  19. CHOLECALCIFEROL [Concomitant]
  20. CIPROXINE [Concomitant]
     Route: 065
     Dates: start: 20130312
  21. CYCLOSPORIN [Concomitant]
     Route: 065
  22. FOLIC ACID [Concomitant]
  23. HYDROCORTISONE [Concomitant]
     Route: 042
  24. METOCLOPRAMIDE HYDROCHLORIDE [Concomitant]
     Route: 065
  25. NOVORAPID [Concomitant]
     Route: 065
  26. NYSTATIN [Concomitant]
     Route: 065
     Dates: start: 20130310
  27. OXYNORM [Concomitant]
     Route: 065
  28. PANTOPRAZOLE [Concomitant]
     Route: 065
  29. PREDNISOLONE [Concomitant]
     Route: 065
  30. RANITIDINE [Concomitant]
     Route: 065
  31. URSODEOXYCHOLIC ACID [Concomitant]
     Route: 065

REACTIONS (4)
  - Toxic epidermal necrolysis [Fatal]
  - Pallor [Unknown]
  - Rash macular [Unknown]
  - Rash [Unknown]
